FAERS Safety Report 22242397 (Version 6)
Quarter: 2023Q4

REPORT INFORMATION
  Report Type: Report from Study
  Country: US (occurrence: US)
  Receive Date: 20230422
  Receipt Date: 20231212
  Transmission Date: 20240110
  Serious: Yes (Hospitalization, Other)
  Sender: FDA-Public Use
  Company Number: US-TAKEDA-US201826081

PATIENT
  Sex: Male

DRUGS (2)
  1. IDURSULFASE [Suspect]
     Active Substance: IDURSULFASE
     Indication: Mucopolysaccharidosis II
     Dosage: UNK
     Route: 065
     Dates: start: 20180313
  2. IDURSULFASE [Suspect]
     Active Substance: IDURSULFASE
     Dosage: 2 DOSAGE FORM, 1/WEEK
     Route: 042
     Dates: start: 20180424

REACTIONS (11)
  - Pneumonia [Recovering/Resolving]
  - Foreign body ingestion [Recovered/Resolved]
  - Complication associated with device [Not Recovered/Not Resolved]
  - Gait disturbance [Recovering/Resolving]
  - Device occlusion [Recovering/Resolving]
  - Tooth discolouration [Recovering/Resolving]
  - Tooth fracture [Recovering/Resolving]
  - Nasopharyngitis [Recovering/Resolving]
  - Diarrhoea [Unknown]
  - Insomnia [Unknown]
  - Product dose omission issue [Unknown]
